FAERS Safety Report 4762054-2 (Version None)
Quarter: 2005Q3

REPORT INFORMATION
  Report Type: 
  Country: None (occurrence: None)
  Receive Date: 20050831
  Receipt Date: 20050721
  Transmission Date: 20060218
  Serious: No
  Sender: FDA-Public Use
  Company Number: PHEH2005US08133

PATIENT
  Age: 75 Year
  Sex: Female

DRUGS (14)
  1. ENABLEX [Suspect]
     Dosage: 7.5 MG, QD,
  2. BETAPACE [Concomitant]
  3. ATIVAN [Concomitant]
  4. IMODIUM [Concomitant]
  5. LIPITOR [Concomitant]
  6. ASPIRIN [Concomitant]
  7. CARDIZEM [Concomitant]
  8. PREDNISONE [Concomitant]
  9. CALCIUM (CALCIUM) [Concomitant]
  10. FISH OIL (FISH OIL) [Concomitant]
  11. FOSAMAX [Concomitant]
  12. PEPCID [Concomitant]
  13. METHOTREXATE [Concomitant]
  14. PREMARIN [Concomitant]

REACTIONS (1)
  - DIARRHOEA [None]
